FAERS Safety Report 8482991-5 (Version None)
Quarter: 2012Q2

REPORT INFORMATION
  Report Type: 
  Country: None (occurrence: None)
  Receive Date: 20120625
  Receipt Date: 20120615
  Transmission Date: 20120825
  Serious: Yes (Other)
  Sender: FDA-Public Use
  Company Number: DSA_58022_2012

PATIENT

DRUGS (5)
  1. FLUOROURACIL [Suspect]
     Indication: NEUROBLASTOMA
     Dosage: (600 MG/M2)
  2. METHOTREXATE SODIUM [Suspect]
     Indication: NEUROBLASTOMA
     Dosage: (30MG/M2; MONTHLY)
  3. CISPLATIN [Suspect]
     Indication: NEUROBLASTOMA
     Dosage: (60MG/M2; MONTHLY)
  4. LEUCOVORIN CALCIUM [Suspect]
     Indication: NEUROBLASTOMA
     Dosage: (20MG/M2)
  5. THERAPEUTIC RADIOPHARMACEUTICALS [Suspect]
     Indication: NEUROBLASTOMA
     Dosage: (DF)

REACTIONS (1)
  - DIARRHOEA [None]
